FAERS Safety Report 14121180 (Version 1)
Quarter: 2017Q4

REPORT INFORMATION
  Report Type: Spontaneous
  Country: JP (occurrence: JP)
  Receive Date: 20171024
  Receipt Date: 20171024
  Transmission Date: 20180321
  Serious: Yes (Hospitalization)
  Sender: FDA-Public Use
  Company Number: JP-PFIZER INC-2017453202

PATIENT
  Age: 68 Year
  Sex: Female

DRUGS (1)
  1. SELARA [Suspect]
     Active Substance: EPLERENONE
     Indication: PRIMARY HYPERALDOSTERONISM
     Route: 048

REACTIONS (2)
  - Muscular weakness [Recovered/Resolved]
  - Myalgia [Recovered/Resolved]
